FAERS Safety Report 7898872-1 (Version None)
Quarter: 2011Q4

REPORT INFORMATION
  Report Type: 
  Country: None (occurrence: None)
  Receive Date: 20111107
  Receipt Date: 20111104
  Transmission Date: 20120403
  Serious: Yes (Other)
  Sender: FDA-Public Use
  Company Number: DE-PFIZER INC-2011270110

PATIENT
  Age: 72 Year
  Sex: Female

DRUGS (6)
  1. METOPROLOL [Concomitant]
  2. SIMVASTATIN [Concomitant]
  3. NIFEDIPINE [Concomitant]
  4. LEVOTHYROXINE SODIUM [Concomitant]
  5. HYDROCHLOROTHIAZIDE [Concomitant]
  6. CLINDAMYCIN HCL [Suspect]
     Dosage: 600 MG, 3X/DAY
     Route: 048

REACTIONS (4)
  - CARDIAC DISCOMFORT [None]
  - DIZZINESS [None]
  - HYPERHIDROSIS [None]
  - DIARRHOEA [None]
